FAERS Safety Report 7510209-6 (Version None)
Quarter: 2011Q2

REPORT INFORMATION
  Report Type: 
  Country: None (occurrence: None)
  Receive Date: 20110527
  Receipt Date: 20110524
  Transmission Date: 20111010
  Serious: No
  Sender: FDA-Public Use
  Company Number: US-BAYER-2011-044937

PATIENT
  Age: 61 Year
  Sex: Female

DRUGS (2)
  1. AVELOX [Suspect]
     Dosage: UNK
     Dates: start: 20110518
  2. AFINITOR [Concomitant]

REACTIONS (1)
  - LIP SWELLING [None]
